FAERS Safety Report 5464482-9 (Version None)
Quarter: 2007Q3

REPORT INFORMATION
  Report Type: 
  Country: None (occurrence: None)
  Receive Date: 20070921
  Receipt Date: 20070911
  Transmission Date: 20080115
  Serious: Yes (Hospitalization)
  Sender: FDA-Public Use
  Company Number: US-SHR-US-2007-020843

PATIENT
  Age: 53 Year
  Sex: Female
  Weight: 72.562 kg

DRUGS (22)
  1. BETASERON [Suspect]
     Indication: RELAPSING-REMITTING MULTIPLE SCLEROSIS
     Dosage: 8 MIU, EVERY 2D
     Route: 058
     Dates: start: 19930101, end: 20070101
  2. BETASERON [Suspect]
     Dosage: 8 MIU, UNK
     Route: 058
     Dates: start: 20070501
  3. CORTICOSTEROIDS [Suspect]
     Dosage: UNK, UNK
     Dates: end: 20060101
  4. COZAAR [Concomitant]
     Dates: end: 20070101
  5. NEURONTIN [Concomitant]
     Dosage: 300 MG, 3X/DAY
     Route: 048
     Dates: end: 20070101
  6. NEURONTIN [Concomitant]
     Dates: start: 20070101
  7. MAGNESIUM OXIDE [Concomitant]
     Dosage: 250 MG, 2X/DAY
     Route: 048
  8. LYRICA [Concomitant]
     Dosage: 50 MG, 3X/DAY
     Route: 048
     Dates: start: 20070101
  9. LYRICA [Concomitant]
     Dosage: 100 MG, 3X/DAY
     Route: 048
     Dates: start: 20070101
  10. POTASSIUM CHLORIDE [Concomitant]
     Dosage: 20 A?G/DAY, UNK
  11. HYDROCHLOROTHIAZIDE [Concomitant]
  12. DIOVAN HCT [Concomitant]
     Dosage: 160/25 MG
  13. PEPCID [Concomitant]
  14. NORVASC [Concomitant]
     Dosage: 10 MG/D, UNK
  15. ABILIFY [Concomitant]
     Dosage: 10 MG/D, UNK
  16. PAXIL [Concomitant]
     Dosage: .25 MG/D, UNK
  17. SPIRIVA [Concomitant]
  18. NORFLEX [Concomitant]
     Dosage: 100 MG, 2X/DAY
  19. IRON [Concomitant]
  20. BACLOFEN [Concomitant]
     Dosage: 10 MG, 4X/DAY
     Route: 048
  21. PROVIGIL [Concomitant]
     Indication: FATIGUE
     Dosage: 200 MG/D, UNK
  22. ATENOLOL [Concomitant]
     Dosage: 25 MG, 1X/DAY

REACTIONS (3)
  - DELIRIUM [None]
  - MULTIPLE SCLEROSIS [None]
  - PNEUMONIA [None]
